FAERS Safety Report 12920972 (Version 1)
Quarter: 2016Q4

REPORT INFORMATION
  Report Type: Spontaneous
  Country: DE (occurrence: DE)
  Receive Date: 20161107
  Receipt Date: 20161107
  Transmission Date: 20170207
  Serious: Yes (Other)
  Sender: FDA-Public Use
  Company Number: DE-TEVA-708978GER

PATIENT
  Age: 55 Year
  Sex: Female

DRUGS (1)
  1. CLINDAMYCIN 600 MG [Suspect]
     Active Substance: CLINDAMYCIN
     Indication: DENTAL OPERATION
     Dosage: INTAKE ONCE ON THE SAME EVENING OF THE DENTAL OPERATION
     Route: 048
     Dates: start: 201610, end: 201610

REACTIONS (2)
  - Circulatory collapse [Recovered/Resolved]
  - Syncope [Recovered/Resolved]

NARRATIVE: CASE EVENT DATE: 201610
